FAERS Safety Report 20347033 (Version 1)
Quarter: 2022Q1

REPORT INFORMATION
  Report Type: Spontaneous
  Country: IT (occurrence: IT)
  Receive Date: 20220118
  Receipt Date: 20220118
  Transmission Date: 20220423
  Serious: Yes (Other)
  Sender: FDA-Public Use
  Company Number: IT-UCBSA-2022001996

PATIENT
  Age: 2 Year
  Sex: Female

DRUGS (1)
  1. KEPPRA [Suspect]
     Active Substance: LEVETIRACETAM
     Indication: Status epilepticus
     Dosage: 700 MILLIGRAM (APPROXIMATELY 30 MG/KG/DAY)

REACTIONS (2)
  - Tremor [Unknown]
  - Product use in unapproved indication [Unknown]
